FAERS Safety Report 9130392 (Version 2)
Quarter: 2013Q2

REPORT INFORMATION
  Report Type: Spontaneous
  Country: US (occurrence: US)
  Receive Date: 20130228
  Receipt Date: 20130412
  Transmission Date: 20140414
  Serious: Yes (Other)
  Sender: FDA-Public Use
  Company Number: US-PFIZER INC-2013068247

PATIENT
  Age: 61 Year
  Sex: Female
  Weight: 72.56 kg

DRUGS (6)
  1. ZOLOFT [Suspect]
     Indication: DEPRESSION
     Dosage: 100 MG, 1X/DAY
  2. NEURONTIN [Suspect]
     Indication: AFFECTIVE DISORDER
     Dosage: 800 MG, 3X/DAY
  3. GEODON [Suspect]
     Indication: DRUG EFFECT INCREASED
     Dosage: 80 MG, 2X/DAY
  4. XANAX [Concomitant]
     Indication: PANIC ATTACK
     Dosage: 1 MG, 3X/DAY
  5. VICODIN [Concomitant]
     Indication: BACK PAIN
     Dosage: UNK
  6. RITALIN [Concomitant]
     Indication: ATTENTION DEFICIT/HYPERACTIVITY DISORDER
     Dosage: UNK

REACTIONS (4)
  - Convulsion [Recovered/Resolved]
  - Tardive dyskinesia [Recovered/Resolved]
  - Drug ineffective [Unknown]
  - Off label use [Unknown]
